FAERS Safety Report 6419492-1 (Version None)
Quarter: 2009Q4

REPORT INFORMATION
  Report Type: 
  Country: None (occurrence: None)
  Receive Date: 20091029
  Receipt Date: 20091022
  Transmission Date: 20100525
  Serious: Yes (Life-Threatening, Other)
  Sender: FDA-Public Use
  Company Number: CN-ROXANE LABORATORIES, INC.-2009-RO-01086RO

PATIENT
  Age: 16 Year
  Sex: Male
  Weight: 50 kg

DRUGS (3)
  1. LIDOCAINE [Suspect]
     Indication: VENTRICULAR FIBRILLATION
     Route: 042
     Dates: start: 20070301
  2. PROPOFOL [Suspect]
     Indication: MAINTENANCE OF ANAESTHESIA
     Dates: start: 20070301
  3. ATROPINE [Suspect]
     Indication: VENTRICULAR FIBRILLATION
     Route: 042
     Dates: start: 20070301

REACTIONS (8)
  - BLOOD CREATINE PHOSPHOKINASE INCREASED [None]
  - BLOOD LACTIC ACID INCREASED [None]
  - BRUGADA SYNDROME [None]
  - BUNDLE BRANCH BLOCK RIGHT [None]
  - ELECTROCARDIOGRAM QT PROLONGED [None]
  - HYPOKALAEMIA [None]
  - REFUSAL OF TREATMENT BY RELATIVE [None]
  - VENTRICULAR FIBRILLATION [None]
